FAERS Safety Report 6657733-6 (Version None)
Quarter: 2010Q1

REPORT INFORMATION
  Report Type: 
  Country: None (occurrence: None)
  Receive Date: 20100319
  Receipt Date: 20071213
  Transmission Date: 20100710
  Serious: Yes (Other)
  Sender: FDA-Public Use
  Company Number: 2007SP024937

PATIENT
  Age: 57 Year
  Sex: Male

DRUGS (3)
  1. PEG-INTRON [Suspect]
     Indication: HEPATITIS C
     Dosage: 150 MCG; SC : 50 MCG; SC
     Route: 058
     Dates: start: 20070904, end: 20071101
  2. PEG-INTRON [Suspect]
     Indication: HEPATITIS C
     Dosage: 150 MCG; SC : 50 MCG; SC
     Route: 058
     Dates: start: 20071101, end: 20080108
  3. REBETOL [Suspect]
     Indication: HEPATITIS C
     Dosage: ; PO
     Route: 048
     Dates: start: 20070904, end: 20080108

REACTIONS (10)
  - BACTERIAL INFECTION [None]
  - CANDIDIASIS [None]
  - CHOLECYSTECTOMY [None]
  - COUGH [None]
  - DEHYDRATION [None]
  - FULL BLOOD COUNT DECREASED [None]
  - PNEUMONIA [None]
  - PYREXIA [None]
  - VIRAL LOAD INCREASED [None]
  - VOMITING [None]
